FAERS Safety Report 24266409 (Version 2)
Quarter: 2024Q3

REPORT INFORMATION
  Report Type: Spontaneous
  Country: AT (occurrence: AT)
  Receive Date: 20240830
  Receipt Date: 20240913
  Transmission Date: 20241016
  Serious: No
  Sender: MELINTA THERAPEUTICS
  Company Number: AT-CDSU_IT-AT-MEN-108278

PATIENT

DRUGS (1)
  1. ORITAVANCIN [Suspect]
     Active Substance: ORITAVANCIN
     Indication: Enterococcal infection
     Dosage: 1200 MILLIGRAM, SINGLE
     Route: 042
     Dates: start: 20240820, end: 20240820

REACTIONS (3)
  - Pyrexia [Recovered/Resolved]
  - Chills [Recovered/Resolved]
  - Product use in unapproved indication [Recovered/Resolved]

NARRATIVE: CASE EVENT DATE: 20240820
